FAERS Safety Report 11712405 (Version 1)
Quarter: 2015Q4

REPORT INFORMATION
  Report Type: Spontaneous
  Country: US (occurrence: US)
  Receive Date: 20151104
  Receipt Date: 20151104
  Transmission Date: 20160304
  Serious: No
  Sender: FDA-Public Use
  Company Number: US-ELI_LILLY_AND_COMPANY-US201104005521

PATIENT
  Sex: Female

DRUGS (1)
  1. FORTEO [Suspect]
     Active Substance: TERIPARATIDE
     Indication: OSTEOPOROSIS
     Dosage: 20 UG, QD
     Dates: start: 20110408

REACTIONS (7)
  - Nausea [Recovered/Resolved]
  - Dizziness [Unknown]
  - Arthralgia [Unknown]
  - Adverse drug reaction [Unknown]
  - Poor peripheral circulation [Unknown]
  - Pain in extremity [Not Recovered/Not Resolved]
  - Headache [Unknown]
